FAERS Safety Report 9119370 (Version 3)
Quarter: 2014Q3

REPORT INFORMATION
  Report Type: Spontaneous
  Country: US (occurrence: US)
  Receive Date: 20130207
  Receipt Date: 20140804
  Transmission Date: 20150326
  Serious: Yes (Disabling, Other)
  Sender: FDA-Public Use
  Company Number: US-009507513-1302USA001759

PATIENT
  Sex: Female
  Weight: 54.42 kg

DRUGS (1)
  1. NUVARING [Suspect]
     Active Substance: ETHINYL ESTRADIOL\ETONOGESTREL
     Indication: CONTRACEPTION
     Dosage: UNK
     Route: 067
     Dates: start: 20070917, end: 20110225

REACTIONS (20)
  - Nephrolithiasis [Unknown]
  - Viral infection [Unknown]
  - Exposure during pregnancy [Recovered/Resolved]
  - Acne [Unknown]
  - Muscle spasms [Unknown]
  - Purpura [Unknown]
  - Ovarian cyst [Unknown]
  - Skin disorder [Unknown]
  - Body tinea [Unknown]
  - Lichenoid keratosis [Unknown]
  - Iron deficiency anaemia [Unknown]
  - Nasal congestion [Unknown]
  - Dermal cyst [Unknown]
  - Cough [Unknown]
  - Menorrhagia [Unknown]
  - Pulmonary embolism [Not Recovered/Not Resolved]
  - Oropharyngeal pain [Unknown]
  - Dermatitis [Unknown]
  - Urinary tract infection [Unknown]
  - Vaginal infection [Unknown]

NARRATIVE: CASE EVENT DATE: 20090504
